FAERS Safety Report 12176636 (Version 1)
Quarter: 2016Q1

REPORT INFORMATION
  Report Type: Spontaneous
  Country: US (occurrence: US)
  Receive Date: 20160314
  Receipt Date: 20160314
  Transmission Date: 20160526
  Serious: No
  Sender: FDA-Public Use
  Company Number: US-AKORN PHARMACEUTICALS-2015AKN00484

PATIENT
  Age: 33 Year
  Sex: Male
  Weight: 97.52 kg

DRUGS (1)
  1. MYORISAN [Suspect]
     Active Substance: ISOTRETINOIN
     Indication: ACNE CONGLOBATA
     Dosage: 40 MG, 2X/DAY
     Route: 048
     Dates: start: 20150811, end: 20150825

REACTIONS (2)
  - Headache [Unknown]
  - Impaired work ability [Unknown]

NARRATIVE: CASE EVENT DATE: 201508
